FAERS Safety Report 23752195 (Version 1)
Quarter: 2024Q2

REPORT INFORMATION
  Report Type: Spontaneous
  Country: US (occurrence: None)
  Receive Date: 20240417
  Receipt Date: 20240417
  Transmission Date: 20240716
  Serious: Yes (Hospitalization)
  Sender: FDA-Public Use
  Company Number: None

PATIENT
  Age: 58 Year
  Sex: Female
  Weight: 49 kg

DRUGS (2)
  1. XELODA [Suspect]
     Active Substance: CAPECITABINE
     Dates: end: 20240408
  2. OXALIPLATIN [Suspect]
     Active Substance: OXALIPLATIN
     Dates: end: 20240408

REACTIONS (10)
  - Infusion related reaction [None]
  - Dizziness [None]
  - Dyspnoea [None]
  - Dysphagia [None]
  - Speech disorder [None]
  - Hypertension [None]
  - Tachycardia [None]
  - Hypoxia [None]
  - Temperature intolerance [None]
  - Tongue movement disturbance [None]

NARRATIVE: CASE EVENT DATE: 20240408
